FAERS Safety Report 15213241 (Version 2)
Quarter: 2018Q3

REPORT INFORMATION
  Report Type: Spontaneous
  Country: US (occurrence: US)
  Receive Date: 20180730
  Receipt Date: 20180731
  Transmission Date: 20181010
  Serious: No
  Sender: FDA-Public Use
  Company Number: US-PFIZER INC-2018303745

PATIENT
  Age: 67 Year
  Sex: Female
  Weight: 48.73 kg

DRUGS (2)
  1. LYRICA [Suspect]
     Active Substance: PREGABALIN
     Indication: NEURALGIA
  2. LYRICA [Suspect]
     Active Substance: PREGABALIN
     Indication: PAIN IN EXTREMITY
     Dosage: 150 MG, 2X/DAY
     Route: 048

REACTIONS (6)
  - Dizziness [Unknown]
  - Dry mouth [Unknown]
  - Balance disorder [Unknown]
  - Somnolence [Unknown]
  - Speech disorder [Unknown]
  - Gait disturbance [Unknown]
